FAERS Safety Report 18573906 (Version 1)
Quarter: 2020Q4

REPORT INFORMATION
  Report Type: Spontaneous
  Country: US (occurrence: US)
  Receive Date: 20201105
  Receipt Date: 20201105
  Transmission Date: 20210114
  Serious: Yes (Death)
  Sender: FDA-Public Use
  Company Number: None

PATIENT
  Age: 5 Decade
  Sex: Male

DRUGS (4)
  1. METHYLPREDNISOLONE. [Suspect]
     Active Substance: METHYLPREDNISOLONE
     Indication: COVID-19
     Dates: start: 2020
  2. TISSUE PLASMINOGEN ACTIVATOR [Suspect]
     Active Substance: ALTEPLASE
     Indication: COVID-19
     Dates: start: 2020
  3. TOCILIZUMAB. [Suspect]
     Active Substance: TOCILIZUMAB
     Indication: COVID-19
     Route: 042
     Dates: start: 2020
  4. ENOXAPARIN [Suspect]
     Active Substance: ENOXAPARIN
     Indication: COVID-19
     Route: 058
     Dates: start: 2020

REACTIONS (9)
  - Cerebral infarction [None]
  - Peripheral coldness [None]
  - Poor peripheral circulation [None]
  - Muscular weakness [None]
  - Cerebrovascular accident [None]
  - Mental status changes [None]
  - Product use in unapproved indication [None]
  - Peripheral artery occlusion [None]
  - Atrial fibrillation [None]
